FAERS Safety Report 4547027-7 (Version None)
Quarter: 2004Q4

REPORT INFORMATION
  Report Type: 
  Country: None (occurrence: None)
  Receive Date: 20041223
  Receipt Date: 20041018
  Transmission Date: 20050328
  Serious: No
  Sender: FDA-Public Use
  Company Number: US-JNJFOC-20041006217

PATIENT
  Age: 29 Year
  Sex: Female
  Weight: 47.6277 kg

DRUGS (5)
  1. ORTHO EVRA [Suspect]
     Indication: CONTRACEPTION
     Dosage: 1 DOSE(S), 3 IN 4 WEEK, TRANSDERMAL
     Route: 062
     Dates: start: 20040912
  2. LEVOXYL [Concomitant]
  3. MULTIVITAMIN (MULTIVITAMINS) [Concomitant]
  4. VITAMIN C (ASCORBIC ACID) [Concomitant]
  5. TUMS (CALCIUM CARBONATE) [Concomitant]

REACTIONS (4)
  - FEELING COLD [None]
  - FEELING HOT [None]
  - NAUSEA [None]
  - VOMITING [None]
